FAERS Safety Report 6614350-1 (Version None)
Quarter: 2010Q1

REPORT INFORMATION
  Report Type: 
  Country: None (occurrence: None)
  Receive Date: 20100304
  Receipt Date: 20100223
  Transmission Date: 20100710
  Serious: Yes (Death, Hospitalization, Other)
  Sender: FDA-Public Use
  Company Number: US-BAXTER-2010BH001551

PATIENT
  Age: 77 Year
  Sex: Female

DRUGS (100)
  1. HEPARIN SODIUM INJECTION [Suspect]
     Indication: ARTERIAL OCCLUSIVE DISEASE
     Route: 040
     Dates: start: 20071024
  2. HEPARIN SODIUM INJECTION [Suspect]
     Indication: PERIPHERAL ISCHAEMIA
     Route: 040
     Dates: start: 20071024
  3. HEPARIN SODIUM INJECTION [Suspect]
     Indication: THROMBECTOMY
     Route: 040
     Dates: start: 20071024
  4. HEPARIN SODIUM INJECTION [Suspect]
     Indication: THROMBOSIS PROPHYLAXIS
     Route: 040
     Dates: start: 20071024
  5. HEPARIN SODIUM INJECTION [Suspect]
     Route: 041
     Dates: start: 20071024
  6. HEPARIN SODIUM INJECTION [Suspect]
     Route: 041
     Dates: start: 20071024
  7. HEPARIN SODIUM INJECTION [Suspect]
     Route: 041
     Dates: start: 20071024
  8. HEPARIN SODIUM INJECTION [Suspect]
     Route: 041
     Dates: start: 20071024
  9. HEPARIN SODIUM INJECTION [Suspect]
     Route: 010
     Dates: start: 20070101, end: 20080101
  10. HEPARIN SODIUM INJECTION [Suspect]
     Route: 010
     Dates: start: 20070101, end: 20080101
  11. HEPARIN SODIUM INJECTION [Suspect]
     Route: 010
     Dates: start: 20070101, end: 20080101
  12. HEPARIN SODIUM INJECTION [Suspect]
     Route: 010
     Dates: start: 20070101, end: 20080101
  13. HEPARIN SODIUM INJECTION [Suspect]
     Route: 058
  14. HEPARIN SODIUM INJECTION [Suspect]
     Route: 058
  15. HEPARIN SODIUM INJECTION [Suspect]
     Route: 058
  16. HEPARIN SODIUM INJECTION [Suspect]
     Route: 058
  17. AMITRIPTYLINE HCL [Concomitant]
     Indication: DRUG USE FOR UNKNOWN INDICATION
     Route: 065
  18. ATENOLOL [Concomitant]
     Indication: DRUG USE FOR UNKNOWN INDICATION
     Route: 065
  19. HYDROCHLOROTHIAZIDE [Concomitant]
     Indication: DRUG USE FOR UNKNOWN INDICATION
     Route: 065
  20. SIMVASTATIN [Concomitant]
     Indication: DRUG USE FOR UNKNOWN INDICATION
     Route: 065
  21. ACETAMINOPHEN [Concomitant]
     Indication: DRUG USE FOR UNKNOWN INDICATION
     Route: 065
  22. ACYCLOVIR [Concomitant]
     Indication: DRUG USE FOR UNKNOWN INDICATION
     Route: 061
  23. ADENOSINE [Concomitant]
     Indication: DRUG USE FOR UNKNOWN INDICATION
     Route: 065
  24. ALBUMIN 25% [Concomitant]
     Indication: DRUG USE FOR UNKNOWN INDICATION
     Route: 065
  25. ALBUTEROL [Concomitant]
     Indication: DRUG USE FOR UNKNOWN INDICATION
     Route: 065
  26. BENADRYL ^WARNER-LAMBERT^               /USA/ [Concomitant]
     Indication: TRANSFUSION
     Route: 065
  27. REGULAR INSULIN [Concomitant]
     Indication: DRUG USE FOR UNKNOWN INDICATION
     Route: 058
  28. CALCIUM CHLORIDE ^BIOTIKA^ [Concomitant]
     Indication: DRUG USE FOR UNKNOWN INDICATION
     Route: 065
  29. CANASA [Concomitant]
     Indication: DRUG USE FOR UNKNOWN INDICATION
     Route: 065
  30. CEFAZOLIN SODIUM [Concomitant]
     Indication: DRUG USE FOR UNKNOWN INDICATION
     Route: 042
  31. CORTROSYN [Concomitant]
     Indication: DRUG USE FOR UNKNOWN INDICATION
     Route: 065
  32. CULTURELLE CAP [Concomitant]
     Indication: DRUG USE FOR UNKNOWN INDICATION
     Route: 065
  33. DEXTROSE 5% AND SODIUM CHLORIDE 0.45% IN PLASTIC CONTAINER [Concomitant]
     Indication: DRUG USE FOR UNKNOWN INDICATION
     Route: 042
  34. DEXTROSE CONCENTRATE SOLUTION 50% [Concomitant]
     Indication: DRUG USE FOR UNKNOWN INDICATION
     Route: 042
  35. DRUG USED IN DIABETES [Concomitant]
     Indication: DRUG USE FOR UNKNOWN INDICATION
     Route: 065
  36. INTROPIN [Concomitant]
     Indication: DRUG USE FOR UNKNOWN INDICATION
     Route: 065
  37. DROTRECOGIN ALFA [Concomitant]
     Indication: DRUG USE FOR UNKNOWN INDICATION
     Route: 065
  38. ETHEZYME [Concomitant]
     Indication: DRUG USE FOR UNKNOWN INDICATION
     Route: 065
  39. EPOGEN [Concomitant]
     Indication: DRUG USE FOR UNKNOWN INDICATION
     Route: 058
  40. EPOGEN [Concomitant]
     Route: 058
  41. ETOMIDATE [Concomitant]
     Indication: DRUG USE FOR UNKNOWN INDICATION
     Route: 065
  42. ESOMEPRAZOLE [Concomitant]
     Indication: DRUG USE FOR UNKNOWN INDICATION
     Route: 065
  43. FENTANYL [Concomitant]
     Indication: DRUG USE FOR UNKNOWN INDICATION
     Route: 065
  44. SACCHAROMYCES BOULARDII [Concomitant]
     Indication: DRUG USE FOR UNKNOWN INDICATION
     Route: 065
  45. FLUCONAZOLE [Concomitant]
     Indication: DRUG USE FOR UNKNOWN INDICATION
     Route: 065
  46. FLUDROCORTISONE [Concomitant]
     Indication: DRUG USE FOR UNKNOWN INDICATION
     Route: 065
  47. FORTAZ [Concomitant]
     Indication: DRUG USE FOR UNKNOWN INDICATION
     Route: 065
  48. GLUCERNA ^ABBOTT^ [Concomitant]
     Indication: DRUG USE FOR UNKNOWN INDICATION
     Route: 065
  49. HALOPERIDOL [Concomitant]
     Indication: DRUG USE FOR UNKNOWN INDICATION
     Route: 065
  50. HETASTARCH 6% IN 0.9% SODIUM CHLORIDE IN PLASTIC CONTAINER [Concomitant]
     Indication: DRUG USE FOR UNKNOWN INDICATION
     Route: 065
  51. LORTAB [Concomitant]
     Indication: DRUG USE FOR UNKNOWN INDICATION
     Route: 065
  52. SOLU-CORTEF [Concomitant]
     Indication: DRUG USE FOR UNKNOWN INDICATION
     Route: 065
  53. IBUPROFEN [Concomitant]
     Indication: DRUG USE FOR UNKNOWN INDICATION
     Route: 065
  54. IPRATROPIUM BROMIDE [Concomitant]
     Indication: DRUG USE FOR UNKNOWN INDICATION
     Route: 065
  55. ALBUTEROL SULFATE AND IPRATROPIUM BROMIDE [Concomitant]
     Indication: DRUG USE FOR UNKNOWN INDICATION
     Route: 065
  56. HYDROCHLOROTHIAZIDE [Concomitant]
     Route: 065
  57. HYDROMORPHONE HYDROCHLORIDE [Concomitant]
     Indication: DRUG USE FOR UNKNOWN INDICATION
     Route: 065
  58. REGULAR INSULIN [Concomitant]
     Route: 065
  59. POTASSIUM CHLORIDE [Concomitant]
     Indication: DRUG USE FOR UNKNOWN INDICATION
     Route: 042
  60. LACTOBACILLUS REUTERI [Concomitant]
     Indication: DRUG USE FOR UNKNOWN INDICATION
     Route: 065
  61. LANTUS [Concomitant]
     Indication: DRUG USE FOR UNKNOWN INDICATION
     Route: 065
  62. LASIX [Concomitant]
     Indication: DRUG USE FOR UNKNOWN INDICATION
     Route: 065
  63. LEVAQUIN [Concomitant]
     Indication: DRUG USE FOR UNKNOWN INDICATION
     Route: 065
  64. LEVOPHED [Concomitant]
     Indication: DRUG USE FOR UNKNOWN INDICATION
     Route: 065
  65. LORAZEPAM [Concomitant]
     Indication: DRUG USE FOR UNKNOWN INDICATION
     Route: 042
  66. LORTAB [Concomitant]
     Indication: PAIN
     Route: 065
  67. MAGNESIUM SULFATE [Concomitant]
     Indication: DRUG USE FOR UNKNOWN INDICATION
     Route: 065
  68. MERREM [Concomitant]
     Indication: DRUG USE FOR UNKNOWN INDICATION
     Route: 065
  69. METOPROLOL TARTRATE [Concomitant]
     Indication: DRUG USE FOR UNKNOWN INDICATION
     Route: 065
  70. METRONIDAZOLE [Concomitant]
     Indication: DRUG USE FOR UNKNOWN INDICATION
     Route: 065
  71. MORPHINE SULFATE [Concomitant]
     Indication: DRUG USE FOR UNKNOWN INDICATION
     Route: 042
  72. SODIUM CHLORIDE 0.9% IN PLASTIC CONTAINER [Concomitant]
     Indication: DRUG USE FOR UNKNOWN INDICATION
     Route: 042
  73. 0.45% SODIUM CHLORIDE IRRIGATION IN PLASTIC CONTAINER [Concomitant]
     Indication: DRUG USE FOR UNKNOWN INDICATION
     Route: 042
  74. NYSTATIN [Concomitant]
     Indication: DRUG USE FOR UNKNOWN INDICATION
     Route: 065
  75. PANTOPRAZOLE [Concomitant]
     Indication: DRUG USE FOR UNKNOWN INDICATION
     Route: 065
  76. PEPCID [Concomitant]
     Indication: DRUG USE FOR UNKNOWN INDICATION
     Route: 065
  77. POTASSIUM CHLORIDE [Concomitant]
     Indication: DRUG USE FOR UNKNOWN INDICATION
     Route: 065
  78. PREVALITE [Concomitant]
     Indication: DRUG USE FOR UNKNOWN INDICATION
     Route: 065
  79. DIALYSATE [Concomitant]
     Indication: DRUG USE FOR UNKNOWN INDICATION
     Route: 065
  80. BETADINE [Concomitant]
     Indication: DRUG USE FOR UNKNOWN INDICATION
     Route: 065
  81. PROCRIT [Concomitant]
     Indication: DRUG USE FOR UNKNOWN INDICATION
     Route: 065
  82. QUETIAPINE [Concomitant]
     Indication: DRUG USE FOR UNKNOWN INDICATION
     Route: 065
  83. RENAGEL [Concomitant]
     Indication: DRUG USE FOR UNKNOWN INDICATION
     Route: 065
  84. SODIUM CHLORIDE 0.9% IN PLASTIC CONTAINER [Concomitant]
     Route: 042
  85. SODIUM CHLORIDE 0.9% IN PLASTIC CONTAINER [Concomitant]
     Route: 042
  86. SODIUM CITRATE [Concomitant]
     Indication: DRUG USE FOR UNKNOWN INDICATION
     Route: 065
  87. PHOSPHO-SODA [Concomitant]
     Indication: DRUG USE FOR UNKNOWN INDICATION
     Route: 065
  88. TYLENOL-500 [Concomitant]
     Indication: DRUG USE FOR UNKNOWN INDICATION
     Route: 065
  89. VANCOMYCIN [Concomitant]
     Indication: DRUG USE FOR UNKNOWN INDICATION
     Route: 065
  90. VENOFER [Concomitant]
     Indication: DRUG USE FOR UNKNOWN INDICATION
     Route: 065
  91. VIT K ANTAGONISTS [Concomitant]
     Indication: DRUG USE FOR UNKNOWN INDICATION
     Route: 048
  92. WARFARIN SODIUM [Concomitant]
     Indication: DRUG USE FOR UNKNOWN INDICATION
     Route: 065
  93. ZOFRAN [Concomitant]
     Indication: DRUG USE FOR UNKNOWN INDICATION
     Route: 065
  94. ZOSYN [Concomitant]
     Indication: DRUG USE FOR UNKNOWN INDICATION
     Route: 065
  95. ZYVOX [Concomitant]
     Indication: DRUG USE FOR UNKNOWN INDICATION
     Route: 065
  96. ROCURONIUM BROMIDE [Concomitant]
     Indication: DRUG USE FOR UNKNOWN INDICATION
     Route: 042
  97. ROWASA [Concomitant]
     Indication: DRUG USE FOR UNKNOWN INDICATION
     Route: 054
  98. SIMVASTATIN [Concomitant]
     Route: 065
  99. EZETIMIBE [Concomitant]
     Indication: DRUG USE FOR UNKNOWN INDICATION
     Route: 065
  100. CELEXA [Concomitant]
     Indication: DRUG USE FOR UNKNOWN INDICATION
     Route: 065

REACTIONS (28)
  - ACUTE RESPIRATORY FAILURE [None]
  - ANAEMIA [None]
  - ANXIETY [None]
  - BLOOD PRESSURE FLUCTUATION [None]
  - DEEP VEIN THROMBOSIS [None]
  - DEMENTIA [None]
  - DIABETES MELLITUS [None]
  - DIALYSIS [None]
  - FUNGAL INFECTION [None]
  - GENERAL PHYSICAL HEALTH DETERIORATION [None]
  - HYPERLIPIDAEMIA [None]
  - HYPEROSMOLAR STATE [None]
  - HYPERTENSION [None]
  - HYPOTENSION [None]
  - HYPOXIA [None]
  - ILEUS PARALYTIC [None]
  - JAUNDICE [None]
  - METABOLIC ACIDOSIS [None]
  - PEPTIC ULCER [None]
  - PERIPHERAL EMBOLISM [None]
  - PERIPHERAL VASCULAR DISORDER [None]
  - PLATELET COUNT DECREASED [None]
  - RENAL FAILURE ACUTE [None]
  - RHABDOMYOLYSIS [None]
  - SEPSIS [None]
  - SHOCK [None]
  - STREPTOCOCCAL SEPSIS [None]
  - VASCULAR INSUFFICIENCY [None]
